FAERS Safety Report 7552091-7 (Version None)
Quarter: 2011Q2

REPORT INFORMATION
  Report Type: 
  Country: None (occurrence: None)
  Receive Date: 20110616
  Receipt Date: 20110614
  Transmission Date: 20111010
  Serious: Yes (Hospitalization, Other)
  Sender: FDA-Public Use
  Company Number: CA-BRISTOL-MYERS SQUIBB COMPANY-15793086

PATIENT
  Age: 41 Year
  Sex: Female

DRUGS (9)
  1. TYLENOL-500 [Concomitant]
     Dosage: 1 DF : 500MGX2
     Dates: start: 20110301
  2. ACETAMINOPHEN [Concomitant]
     Dosage: Q4H
     Dates: start: 20110301
  3. ADVIL LIQUI-GELS [Concomitant]
     Dates: start: 20110407
  4. ESOMEPRAZOLE MAGNESIUM [Concomitant]
     Dates: start: 20110522
  5. BUDESONIDE [Concomitant]
     Dates: start: 20110522
  6. PREDNISONE [Concomitant]
     Dates: start: 20110527
  7. IPILIMUMAB [Suspect]
     Indication: MALIGNANT MELANOMA
     Dosage: 1DF: 1 DOSE
     Route: 042
     Dates: start: 20110511
  8. OXYCODONE HCL [Concomitant]
     Dates: start: 20110504
  9. ZOPICLONE [Concomitant]
     Dosage: HS
     Dates: start: 20110522

REACTIONS (4)
  - DIARRHOEA [None]
  - FATIGUE [None]
  - NAUSEA [None]
  - ABDOMINAL PAIN [None]
